FAERS Safety Report 6544896-6 (Version None)
Quarter: 2010Q1

REPORT INFORMATION
  Report Type: 
  Country: None (occurrence: None)
  Receive Date: 20100121
  Receipt Date: 20100115
  Transmission Date: 20100710
  Serious: Yes (Hospitalization)
  Sender: FDA-Public Use
  Company Number: NZ-PFIZER INC-2009316150

PATIENT
  Age: 87 Year
  Sex: Male

DRUGS (1)
  1. HYSITE [Suspect]
     Dosage: UNK
     Route: 047
     Dates: start: 20091211

REACTIONS (4)
  - EYE INFLAMMATION [None]
  - EYE IRRITATION [None]
  - OCULAR HYPERAEMIA [None]
  - SURGERY [None]
